FAERS Safety Report 11590989 (Version 2)
Quarter: 2015Q4

REPORT INFORMATION
  Report Type: Other
  Country: IT (occurrence: IT)
  Receive Date: 20151003
  Receipt Date: 20151005
  Transmission Date: 20160304
  Serious: Yes (Hospitalization)
  Sender: FDA-Public Use
  Company Number: IT-SUN PHARMACEUTICAL INDUSTRIES LTD-12SUNOX114P

PATIENT

DRUGS (1)
  1. OXALIPLATIN. [Suspect]
     Active Substance: OXALIPLATIN
     Indication: COLON CANCER
     Dosage: 190 MG, TOTAL
     Route: 042
     Dates: start: 20120301, end: 20120301

REACTIONS (2)
  - Muscular weakness [Recovered/Resolved with Sequelae]
  - Throat tightness [Recovered/Resolved with Sequelae]

NARRATIVE: CASE EVENT DATE: 20120301
